FAERS Safety Report 24525550 (Version 1)
Quarter: 2024Q4

REPORT INFORMATION
  Report Type: Spontaneous
  Country: US (occurrence: US)
  Receive Date: 20241020
  Receipt Date: 20241020
  Transmission Date: 20250114
  Serious: Yes (Other)
  Sender: DR REDDYS
  Company Number: US-DRL-USA-LIT/USA/24/0015327

PATIENT
  Age: 4 Year
  Sex: Male

DRUGS (6)
  1. LACOSAMIDE [Suspect]
     Active Substance: LACOSAMIDE
     Indication: Epilepsy
  2. LAMOTRIGINE [Suspect]
     Active Substance: LAMOTRIGINE
     Indication: Epilepsy
     Route: 048
  3. LEVETIRACETAM [Suspect]
     Active Substance: LEVETIRACETAM
     Indication: Epilepsy
     Route: 048
  4. TOPIRAMATE [Suspect]
     Active Substance: TOPIRAMATE
     Indication: Epilepsy
     Route: 048
  5. CLOBAZAM [Suspect]
     Active Substance: CLOBAZAM
     Indication: Epilepsy
     Route: 048
  6. OXCARBAZEPINE [Concomitant]
     Active Substance: OXCARBAZEPINE
     Indication: Epilepsy
     Route: 048

REACTIONS (1)
  - Drug ineffective [Unknown]
